FAERS Safety Report 10842171 (Version 2)
Quarter: 2015Q1

REPORT INFORMATION
  Report Type: Report from Study
  Country: US (occurrence: US)
  Receive Date: 20150220
  Receipt Date: 20150224
  Transmission Date: 20150721
  Serious: Yes (Life-Threatening, Hospitalization, Other)
  Sender: FDA-Public Use
  Company Number: US-009507513-1502USA007952

PATIENT

DRUGS (14)
  1. PEGASPARGASE [Suspect]
     Active Substance: PEGASPARGASE
     Dosage: 2500 IU/M2, DAY 24
  2. DECITABINE. [Suspect]
     Active Substance: DECITABINE
     Dosage: 15 MG/M2, DAYS 15-21
  3. ZOLINZA [Suspect]
     Active Substance: VORINOSTAT
     Indication: ACUTE LYMPHOCYTIC LEUKAEMIA
     Dosage: 180 MG/M2, DAYS 3-10
  4. VINCRISTINE SULFATE. [Suspect]
     Active Substance: VINCRISTINE SULFATE
     Indication: ACUTE LYMPHOCYTIC LEUKAEMIA
     Dosage: 1.5 MG/M2, DAY 10
  5. METHOTREXATE [Suspect]
     Active Substance: METHOTREXATE
     Indication: ACUTE LYMPHOCYTIC LEUKAEMIA
     Route: 037
  6. HEXADROL [Suspect]
     Active Substance: DEXAMETHASONE
     Dosage: 10 MG/M2, BID; DAYS 22-26
  7. ZOLINZA [Suspect]
     Active Substance: VORINOSTAT
     Dosage: 180 MG/M2, DAYS 17-24
  8. VINCRISTINE SULFATE. [Suspect]
     Active Substance: VINCRISTINE SULFATE
     Dosage: 1.5 MG/M2, DAY 17
  9. VINCRISTINE SULFATE. [Suspect]
     Active Substance: VINCRISTINE SULFATE
     Dosage: 1.5 MG/M2, DAY 31
  10. PEGASPARGASE [Suspect]
     Active Substance: PEGASPARGASE
     Indication: ACUTE LYMPHOCYTIC LEUKAEMIA
     Dosage: 2500 IU/M2, DAY 10
  11. DECITABINE. [Suspect]
     Active Substance: DECITABINE
     Indication: ACUTE LYMPHOCYTIC LEUKAEMIA
     Dosage: 15 MG/M2, DAYS 1-7
  12. VINCRISTINE SULFATE. [Suspect]
     Active Substance: VINCRISTINE SULFATE
     Dosage: 1.5 MG/M2, DAY 24
  13. HEXADROL [Suspect]
     Active Substance: DEXAMETHASONE
     Indication: ACUTE LYMPHOCYTIC LEUKAEMIA
     Dosage: 10 MG/M2, BID; DAYS 8-12
  14. MITOXANTRONE HYDROCHLORIDE. [Suspect]
     Active Substance: MITOXANTRONE HYDROCHLORIDE
     Indication: ACUTE LYMPHOCYTIC LEUKAEMIA
     Dosage: 10 MG/M2, DAY 8 AND 9

REACTIONS (3)
  - Seizure [Unknown]
  - Delirium [Unknown]
  - Somnolence [Unknown]
